FAERS Safety Report 8029993-0 (Version None)
Quarter: 2012Q1

REPORT INFORMATION
  Report Type: 
  Country: None (occurrence: None)
  Receive Date: 20120106
  Receipt Date: 20120106
  Transmission Date: 20120608
  Serious: Yes (Hospitalization)
  Sender: FDA-Public Use
  Company Number: None

PATIENT
  Sex: Male
  Weight: 11.7 kg

DRUGS (5)
  1. METHOTREXATE [Suspect]
     Dosage: 10 MG
  2. VINCRISTINE SULFATE [Suspect]
     Dosage: 2.4 MG
  3. DEXAMETHASONE [Suspect]
     Dosage: 45 MG
  4. CYTARABINE [Suspect]
     Dosage: 50 MG
  5. PEG-L-ASPARAGINASE (PEGASPARGASE, ONCOSPAR) [Suspect]
     Dosage: 1325 IU

REACTIONS (8)
  - SINUS DISORDER [None]
  - HAEMORRHAGIC INFARCTION [None]
  - EYE SWELLING [None]
  - PERIORBITAL CELLULITIS [None]
  - CAVERNOUS SINUS THROMBOSIS [None]
  - ZYGOMYCOSIS [None]
  - EXOPHTHALMOS [None]
  - ENTEROBACTER INFECTION [None]
